FAERS Safety Report 9882695 (Version 1)
Quarter: 2014Q1

REPORT INFORMATION
  Report Type: Spontaneous
  Country: US (occurrence: US)
  Receive Date: 20140207
  Receipt Date: 20140207
  Transmission Date: 20141002
  Serious: Yes (Other)
  Sender: FDA-Public Use
  Company Number: PHHY2014US012937

PATIENT
  Age: 76 Year
  Sex: Male

DRUGS (4)
  1. DIGOXIN [Suspect]
     Indication: CARDIAC FAILURE CONGESTIVE
  2. TAMOXIFEN [Suspect]
     Indication: BREAST CANCER
  3. DILTIAZEM [Concomitant]
  4. WARFARIN [Concomitant]

REACTIONS (2)
  - Breast cancer metastatic [Unknown]
  - Disease progression [Unknown]
